FAERS Safety Report 13082701 (Version 1)
Quarter: 2017Q1

REPORT INFORMATION
  Report Type: Spontaneous
  Country: US (occurrence: US)
  Receive Date: 20170103
  Receipt Date: 20170103
  Transmission Date: 20170428
  Serious: Yes (Hospitalization)
  Sender: FDA-Public Use
  Company Number: US-RELYPSA-RLY2016003699

PATIENT
  Age: 51 Year
  Sex: Male

DRUGS (1)
  1. VELTASSA [Suspect]
     Active Substance: PATIROMER
     Indication: HYPERKALAEMIA
     Dosage: 8.4 G, QD
     Route: 048
     Dates: start: 20161105

REACTIONS (6)
  - Hyperkalaemia [Recovering/Resolving]
  - Hospitalisation [Recovered/Resolved]
  - Product solubility abnormal [Recovered/Resolved]
  - Osteomyelitis [Recovering/Resolving]
  - Blood magnesium increased [Unknown]
  - Sepsis [Recovering/Resolving]

NARRATIVE: CASE EVENT DATE: 201611
